FAERS Safety Report 4369775-4 (Version None)
Quarter: 2004Q2

REPORT INFORMATION
  Report Type: 
  Country: None (occurrence: None)
  Receive Date: 20040525
  Receipt Date: 20040512
  Transmission Date: 20050107
  Serious: Yes (Hospitalization, Other)
  Sender: FDA-Public Use
  Company Number: 2004031631

PATIENT
  Age: 56 Year
  Sex: Male
  Weight: 70 kg

DRUGS (1)
  1. CARDURA [Suspect]
     Indication: ESSENTIAL HYPERTENSION
     Dosage: 4 MG (4 MG, 1 IN 1 D), ORAL
     Route: 048
     Dates: end: 20031101

REACTIONS (4)
  - BEZOAR [None]
  - DYSPLASIA [None]
  - GASTROINTESTINAL TRACT ADENOMA [None]
  - RECTAL HAEMORRHAGE [None]
